FAERS Safety Report 17958237 (Version 2)
Quarter: 2020Q3

REPORT INFORMATION
  Report Type: Spontaneous
  Country: PL (occurrence: PL)
  Receive Date: 20200629
  Receipt Date: 20200720
  Transmission Date: 20201103
  Serious: Yes (Hospitalization, Other)
  Sender: FDA-Public Use
  Company Number: PL-PFIZER INC-2020247449

PATIENT
  Age: 55 Year
  Sex: Female
  Weight: 89 kg

DRUGS (5)
  1. PANTOPRAZOLE [Suspect]
     Active Substance: PANTOPRAZOLE
     Dosage: 40 MG, 1X/DAY (PER 24 H 1?0?0 TABLET)
     Route: 048
  2. ATORVASTATIN CALCIUM. [Suspect]
     Active Substance: ATORVASTATIN CALCIUM
     Dosage: 80 MG, 1X/DAY (PER 24 H)
     Route: 048
  3. ACETYLSALICYLIC ACID [Suspect]
     Active Substance: ASPIRIN
     Dosage: 75 MG, 1X/DAY (PER 24 H)
     Route: 048
  4. BISOPROLOL/PERINDOPRIL [Suspect]
     Active Substance: BISOPROLOL\PERINDOPRIL
     Dosage: 1 DF, DAILY (PERINDOPRIL AND BISOPROLOL 5 + 5 MG PER 24 H)
     Route: 048
  5. CLOPIDOGREL [Suspect]
     Active Substance: CLOPIDOGREL BISULFATE
     Dosage: 75 MG, 1X/DAY (PER 24 H)
     Route: 048

REACTIONS (3)
  - Pericardial effusion [Recovering/Resolving]
  - Cardiac failure [Recovering/Resolving]
  - Drug ineffective [Recovering/Resolving]
